FAERS Safety Report 8950287 (Version 1)
Quarter: 2012Q4

REPORT INFORMATION
  Report Type: 
  Country: JP (occurrence: JP)
  Receive Date: 20121205
  Receipt Date: 20121205
  Transmission Date: 20130627
  Serious: Yes (Hospitalization)
  Sender: FDA-Public Use
  Company Number: JP-BAXTER-2012BAX025297

PATIENT
  Age: 30 Year
  Sex: Male
  Weight: 70 kg

DRUGS (6)
  1. SUPRANE [Suspect]
     Indication: GENERAL ANAESTHESIA
     Route: 055
     Dates: start: 20120823, end: 20120823
  2. PROPOFOL [Suspect]
     Indication: GENERAL ANAESTHESIA
     Route: 042
     Dates: start: 20120823, end: 20120823
  3. FENTANYL [Suspect]
     Indication: GENERAL ANAESTHESIA
     Route: 042
     Dates: start: 20120823, end: 20120823
  4. REMIFENTANIL HYDROCHLORIDE [Suspect]
     Indication: GENERAL ANAESTHESIA
     Dosage: 0.15
     Route: 042
     Dates: start: 20120823, end: 20120823
  5. ROCURONIUM BROMIDE [Suspect]
     Indication: GENERAL ANAESTHESIA
     Route: 042
     Dates: start: 20120823, end: 20120823
  6. PACETCOOL [Suspect]
     Indication: DRUG USE FOR UNKNOWN INDICATION
     Route: 042
     Dates: start: 20120823, end: 20120823

REACTIONS (2)
  - Asthma [Recovered/Resolved]
  - Productive cough [None]
